FAERS Safety Report 14607319 (Version 1)
Quarter: 2018Q1

REPORT INFORMATION
  Report Type: Spontaneous
  Country: US (occurrence: US)
  Receive Date: 20180307
  Receipt Date: 20180307
  Transmission Date: 20180509
  Serious: No
  Sender: FDA-Public Use
  Company Number: US-PFIZER INC-2018091164

PATIENT
  Age: 35 Year
  Sex: Female

DRUGS (1)
  1. METHOTREXATE SODIUM. [Suspect]
     Active Substance: METHOTREXATE SODIUM
     Dosage: 25 MG, WEEKLY

REACTIONS (7)
  - Musculoskeletal stiffness [Unknown]
  - Cough [Unknown]
  - Pain [Unknown]
  - Musculoskeletal pain [Unknown]
  - Injection site nodule [Unknown]
  - Joint swelling [Unknown]
  - Oedema peripheral [Unknown]
